FAERS Safety Report 4368857-0 (Version None)
Quarter: 2004Q2

REPORT INFORMATION
  Report Type: 
  Country: None (occurrence: None)
  Receive Date: 20040527
  Receipt Date: 20040527
  Transmission Date: 20050107
  Serious: Yes (Hospitalization)
  Sender: FDA-Public Use
  Company Number: None

PATIENT
  Age: 75 Year
  Sex: Male

DRUGS (1)
  1. ASPIRIN [Suspect]
     Indication: PAIN
     Dosage: 325 MG 2 TABS FOUR TIMES DAILY
     Dates: end: 20040516

REACTIONS (4)
  - ARTERIAL INJURY [None]
  - GASTROINTESTINAL EROSION [None]
  - HAEMATEMESIS [None]
  - LOOSE STOOLS [None]
